FAERS Safety Report 7776371-5 (Version None)
Quarter: 2011Q3

REPORT INFORMATION
  Report Type: 
  Country: None (occurrence: None)
  Receive Date: 20110916
  Receipt Date: 20110909
  Transmission Date: 20111222
  Serious: Yes (Disabling)
  Sender: FDA-Public Use
  Company Number: 2011029749

PATIENT
  Sex: Female
  Weight: 71.7 kg

DRUGS (13)
  1. PROMETRIUM [Concomitant]
  2. SYNTHROID [Concomitant]
  3. LOVAZA [Concomitant]
  4. VAGIFEM [Concomitant]
  5. HIZENTRA [Suspect]
     Indication: IMMUNODEFICIENCY COMMON VARIABLE
     Dosage: (8 G 1X/WEEK, 40 ML WEEKLY SUBCUTANEOUS)
     Route: 058
  6. HIZENTRA [Suspect]
     Indication: HYPOGAMMAGLOBULINAEMIA
     Dosage: (8 G 1X/WEEK, 40 ML WEEKLY SUBCUTANEOUS)
     Route: 058
  7. NEXIUM [Concomitant]
  8. TRICOR [Concomitant]
  9. CRESTOR [Concomitant]
  10. METFORMIN HCL [Concomitant]
  11. ESTRASORB [Concomitant]
  12. CALCIUM CARBONATE [Concomitant]
  13. LEXAPRO [Concomitant]

REACTIONS (13)
  - LYMPHOMA [None]
  - FATIGUE [None]
  - NIGHT SWEATS [None]
  - CHILLS [None]
  - LYMPHADENOPATHY [None]
  - ANAEMIA [None]
  - PYREXIA [None]
  - PAIN [None]
  - INJECTION SITE ERYTHEMA [None]
  - INJECTION SITE SCAR [None]
  - INJECTION SITE STREAKING [None]
  - IMPLANT SITE REACTION [None]
  - ASTHENIA [None]
